FAERS Safety Report 10626687 (Version 4)
Quarter: 2015Q1

REPORT INFORMATION
  Report Type: Spontaneous
  Country: US (occurrence: US)
  Receive Date: 20141204
  Receipt Date: 20150224
  Transmission Date: 20150720
  Serious: Yes (Death, Hospitalization)
  Sender: FDA-Public Use
  Company Number: US-UNITED THERAPEUTICS-UNT-2014-011253

PATIENT
  Sex: Male
  Weight: 63.95 kg

DRUGS (1)
  1. TYVASO [Suspect]
     Active Substance: TREPROSTINIL
     Indication: PULMONARY ARTERIAL HYPERTENSION
     Dosage: 54 ?G, QID
     Dates: start: 20130416, end: 20141211

REACTIONS (4)
  - Death [Fatal]
  - Fluid overload [Recovering/Resolving]
  - Right ventricular dysfunction [Recovering/Resolving]
  - Pulmonary oedema [Unknown]

NARRATIVE: CASE EVENT DATE: 20141112
